FAERS Safety Report 4277557-7 (Version None)
Quarter: 2004Q1

REPORT INFORMATION
  Report Type: 
  Country: None (occurrence: None)
  Receive Date: 20040121
  Receipt Date: 20040121
  Transmission Date: 20041129
  Serious: Yes (Hospitalization)
  Sender: FDA-Public Use
  Company Number: None

PATIENT
  Age: 53 Year
  Sex: Male
  Weight: 117.9 kg

DRUGS (13)
  1. ZOSYN [Suspect]
     Indication: INFECTION
     Dosage: 1.0125GM, 3.375MG, IV PIGGY
     Route: 042
  2. DIPHENHYDRAMINE [Concomitant]
  3. LEVOFLOXACIN [Concomitant]
  4. RABEPRAZOLE EC [Concomitant]
  5. HEPARIN [Concomitant]
  6. ACETAMINOPHEN AND HYDROCODONE BITARTRATE [Concomitant]
  7. DEXTROSE 50% [Concomitant]
  8. INSULIN REG HUMAN 100 U/ML INJ NOVOLIN R [Concomitant]
  9. TERBINAFINE HCL 1% [Concomitant]
  10. METOPROLOL TARTRATE [Concomitant]
  11. GLYBURIDE [Concomitant]
  12. CITALOPRAM [Concomitant]
  13. ABSORBASE TOP OINT [Concomitant]

REACTIONS (1)
  - RASH [None]
